FAERS Safety Report 17340261 (Version 1)
Quarter: 2020Q1

REPORT INFORMATION
  Report Type: Other
  Country: CN (occurrence: CN)
  Receive Date: 20200129
  Receipt Date: 20200129
  Transmission Date: 20200409
  Serious: Yes (Other)
  Sender: FDA-Public Use
  Company Number: CN-TOPROL ACQUISITION LLC-2020-TOP-000047

PATIENT
  Age: 46 Year
  Sex: Female
  Weight: 62 kg

DRUGS (4)
  1. METOPROLOL SUCCINATE. [Suspect]
     Active Substance: METOPROLOL SUCCINATE
     Indication: SECONDARY HYPERTENSION
  2. HYDROCHLOROTHIAZIDE. [Concomitant]
     Active Substance: HYDROCHLOROTHIAZIDE
     Indication: SECONDARY HYPERTENSION
     Dosage: 1 DF, QD
     Route: 048
     Dates: start: 20170522, end: 20200116
  3. METOPROLOL SUCCINATE. [Suspect]
     Active Substance: METOPROLOL SUCCINATE
     Indication: BLOOD PRESSURE MEASUREMENT
     Dosage: 23.75 MG, QD
     Route: 048
     Dates: start: 20200107, end: 20200116
  4. IRBESARTAN. [Concomitant]
     Active Substance: IRBESARTAN
     Indication: SECONDARY HYPERTENSION
     Dosage: 1 DF, QD
     Route: 048
     Dates: start: 20170522, end: 20200116

REACTIONS (4)
  - Diarrhoea [Recovering/Resolving]
  - Abdominal discomfort [Recovering/Resolving]
  - Nausea [Recovering/Resolving]
  - Retching [Recovering/Resolving]

NARRATIVE: CASE EVENT DATE: 20200108
